FAERS Safety Report 11158855 (Version 1)
Quarter: 2015Q2

REPORT INFORMATION
  Report Type: Report from Study
  Country: US (occurrence: None)
  Receive Date: 20150520
  Receipt Date: 20150520
  Transmission Date: 20150821
  Serious: Yes (Hospitalization)
  Sender: FDA-Public Use
  Company Number: 0325153-XXX-MF

PATIENT
  Age: 46 Year
  Sex: Female
  Weight: 104.33 kg

DRUGS (5)
  1. ATENOLOL. [Concomitant]
     Active Substance: ATENOLOL
  2. IRON [Concomitant]
     Active Substance: IRON
  3. ACE INHIBITOR [Concomitant]
     Active Substance: UNSPECIFIED INGREDIENT
  4. NEXIUM [Concomitant]
     Active Substance: ESOMEPRAZOLE MAGNESIUM
  5. ESTRADIOL NORETHINDRONE [Suspect]
     Active Substance: ESTRADIOL\NORETHINDRONE ACETATE
     Indication: UTERINE LEIOMYOMA
     Route: 048
     Dates: start: 20141119, end: 20150211

REACTIONS (6)
  - Nausea [None]
  - Uterine pain [None]
  - Diarrhoea [None]
  - Uterine haemorrhage [None]
  - Vaginal discharge [None]
  - Vomiting [None]

NARRATIVE: CASE EVENT DATE: 20150211
